FAERS Safety Report 9663871 (Version 1)
Quarter: 2013Q4

REPORT INFORMATION
  Report Type: Spontaneous
  Country: US (occurrence: None)
  Receive Date: 20131030
  Receipt Date: 20131030
  Transmission Date: 20140711
  Serious: Yes (Disabling)
  Sender: FDA-Public Use
  Company Number: None

PATIENT
  Age: 60 Year
  Sex: Female

DRUGS (2)
  1. AMBIEN [Suspect]
     Indication: INSOMNIA
     Route: 048
     Dates: start: 201208
  2. COPAXONE [Suspect]

REACTIONS (5)
  - Road traffic accident [None]
  - Somnambulism [None]
  - Judgement impaired [None]
  - Reading disorder [None]
  - Cognitive disorder [None]
